APPROVED DRUG PRODUCT: EVEROLIMUS
Active Ingredient: EVEROLIMUS
Strength: 0.75MG
Dosage Form/Route: TABLET;ORAL
Application: A205775 | Product #003 | TE Code: AB
Applicant: PH HEALTH LTD
Approved: Oct 18, 2021 | RLD: No | RS: No | Type: RX